FAERS Safety Report 8379609-9 (Version None)
Quarter: 2012Q1

REPORT INFORMATION
  Report Type: 
  Country: None (occurrence: None)
  Receive Date: 20120323
  Receipt Date: 20110421
  Transmission Date: 20120608
  Serious: Yes (Other)
  Sender: FDA-Public Use
  Company Number: 163-21880-11033175

PATIENT
  Age: 60 Year
  Sex: Male

DRUGS (5)
  1. EXJADE (DESFERASIROX) [Concomitant]
  2. REVLIMID [Suspect]
     Indication: MYELODYSPLASTIC SYNDROME
     Dosage: 10 MG, 1 IN 1 D, PO
     Route: 048
     Dates: start: 20110101
  3. DACOGEN [Concomitant]
  4. DESFERAL [Concomitant]
  5. ASPIRIN [Concomitant]

REACTIONS (4)
  - DIARRHOEA [None]
  - WHITE BLOOD CELL COUNT DECREASED [None]
  - RASH [None]
  - HAEMOGLOBIN DECREASED [None]
